FAERS Safety Report 5655180-7 (Version None)
Quarter: 2008Q1

REPORT INFORMATION
  Report Type: 
  Country: None (occurrence: None)
  Receive Date: 20080307
  Receipt Date: 20080225
  Transmission Date: 20080703
  Serious: Yes (Other)
  Sender: FDA-Public Use
  Company Number: US-AMGEN-QUU267366

PATIENT
  Sex: Female
  Weight: 3.04 kg

DRUGS (1)
  1. ENBREL [Suspect]
     Indication: DRUG USE FOR UNKNOWN INDICATION
     Route: 064

REACTIONS (2)
  - GASTROOESOPHAGEAL REFLUX DISEASE [None]
  - SLEEP APNOEA SYNDROME [None]
